APPROVED DRUG PRODUCT: OXACILLIN SODIUM
Active Ingredient: OXACILLIN SODIUM
Strength: EQ 250MG BASE/VIAL
Dosage Form/Route: INJECTABLE;INJECTION
Application: A062798 | Product #004
Applicant: ISTITUTO BIOCHIMICO ITALIANO SPA
Approved: Dec 11, 1995 | RLD: No | RS: No | Type: DISCN